FAERS Safety Report 13964480 (Version 1)
Quarter: 2017Q3

REPORT INFORMATION
  Report Type: Spontaneous
  Country: US (occurrence: US)
  Receive Date: 20170913
  Receipt Date: 20170913
  Transmission Date: 20171128
  Serious: Yes (Other)
  Sender: FDA-Public Use
  Company Number: None

PATIENT
  Age: 63 Year
  Sex: Female
  Weight: 51.75 kg

DRUGS (25)
  1. SYNTHROID [Concomitant]
     Active Substance: LEVOTHYROXINE SODIUM
  2. ESTRADIOL TRANSDERMAL SYSTEM [Concomitant]
     Active Substance: ESTRADIOL
  3. POMEGRANATE [Concomitant]
     Active Substance: POMEGRANATE
  4. CEPHALEXIN 500MG [Suspect]
     Active Substance: CEPHALEXIN
     Indication: CELLULITIS
     Dosage: ?          QUANTITY:28 CAPSULE(S);?EVERY 6 HOURS ORAL
     Route: 048
     Dates: start: 20170906, end: 20170908
  5. EVENING PRIMROSE OIL [Concomitant]
     Active Substance: EVENING PRIMROSE OIL
  6. FISH OIL [Concomitant]
     Active Substance: FISH OIL
  7. CINNAMON. [Concomitant]
     Active Substance: CINNAMON
  8. PROGESTERONE. [Concomitant]
     Active Substance: PROGESTERONE
  9. AGNUS VITEX [Concomitant]
  10. GINGER. [Concomitant]
     Active Substance: GINGER
  11. BILBERRY [Concomitant]
     Active Substance: BILBERRY
  12. HOMEOPATHIC REMEDIES [Concomitant]
  13. APPLE CIDER VINEGAR [Concomitant]
     Active Substance: APPLE CIDER VINEGAR
  14. RELACORE [Concomitant]
  15. VITAMIN B12 [Concomitant]
     Active Substance: CYANOCOBALAMIN
  16. FIBER [Concomitant]
     Active Substance: PSYLLIUM HUSK
  17. BUTCHER^S BROOM [Concomitant]
     Active Substance: RUSCUS ACULEATUS ROOT
  18. GINKGO [Concomitant]
     Active Substance: GINKGO
  19. VITAMIN E [Concomitant]
     Active Substance: .ALPHA.-TOCOPHEROL
  20. L ARGANINE [Concomitant]
  21. MULTIVITAMIN [Concomitant]
     Active Substance: VITAMINS
  22. VITAMIN D [Concomitant]
     Active Substance: CHOLECALCIFEROL
  23. GLUCOSAMINE [Concomitant]
     Active Substance: GLUCOSAMINE
  24. HORSE CHESTNUT EXTRACT [Concomitant]
     Active Substance: HORSE CHESTNUT
  25. TART CHERRY [Concomitant]

REACTIONS (5)
  - Rash generalised [None]
  - Pruritus [None]
  - Eye swelling [None]
  - Rash erythematous [None]
  - Urticaria [None]

NARRATIVE: CASE EVENT DATE: 20170908
